FAERS Safety Report 18297568 (Version 1)
Quarter: 2020Q3

REPORT INFORMATION
  Report Type: Spontaneous
  Country: US (occurrence: US)
  Receive Date: 20200922
  Receipt Date: 20200922
  Transmission Date: 20201103
  Serious: No
  Sender: FDA-Public Use
  Company Number: US-AMARIN PHARMA, INC.-2019AMR000399

PATIENT
  Age: 73 Year
  Sex: Female

DRUGS (5)
  1. VASCEPA [Suspect]
     Active Substance: ICOSAPENT ETHYL
     Indication: BLOOD TRIGLYCERIDES ABNORMAL
     Route: 048
     Dates: start: 2019
  2. OMEGA 3 [Concomitant]
     Active Substance: OMEGA-3 FATTY ACIDS
     Indication: INFLAMMATION
  3. ORGANIC VITAMINS [Concomitant]
     Indication: INFLAMMATION
  4. OMEGA 3 [Concomitant]
     Active Substance: OMEGA-3 FATTY ACIDS
     Indication: PAIN
  5. ORGANIC VITAMINS [Concomitant]
     Indication: PAIN

REACTIONS (3)
  - Blood sodium decreased [Unknown]
  - Liver function test increased [Unknown]
  - Dental restoration failure [Unknown]

NARRATIVE: CASE EVENT DATE: 2019
